FAERS Safety Report 8540558-4 (Version None)
Quarter: 2012Q3

REPORT INFORMATION
  Report Type: 
  Country: None (occurrence: None)
  Receive Date: 20120726
  Receipt Date: 20110729
  Transmission Date: 20120928
  Serious: No
  Sender: FDA-Public Use
  Company Number: US-ASTRAZENECA-2011SE45500

PATIENT
  Age: 29 Year
  Sex: Female

DRUGS (4)
  1. OXCARBAZEPINE [Concomitant]
     Indication: AFFECTIVE DISORDER
  2. SEROQUEL [Suspect]
     Indication: AFFECTIVE DISORDER
     Route: 048
     Dates: start: 20110101
  3. CLONAZEPAM [Concomitant]
     Indication: SLEEP DISORDER
  4. SEROQUEL [Suspect]
     Indication: BIPOLAR II DISORDER
     Route: 048
     Dates: start: 20110101

REACTIONS (2)
  - FEELING ABNORMAL [None]
  - SOMNOLENCE [None]
